FAERS Safety Report 7491962-7 (Version None)
Quarter: 2011Q1

REPORT INFORMATION
  Report Type: 
  Country: None (occurrence: None)
  Receive Date: 20110318
  Receipt Date: 20100803
  Transmission Date: 20110831
  Serious: Yes (Disabling)
  Sender: FDA-Public Use
  Company Number: 2010SP042218

PATIENT
  Age: 45 Year
  Sex: Female

DRUGS (5)
  1. SYNTHROID [Concomitant]
  2. PEG-INTRON [Suspect]
     Indication: HEPATITIS C
     Dosage: 120 MCG;
     Dates: start: 20010101, end: 20010101
  3. PEG-INTRON [Suspect]
     Indication: HEPATITIS C
     Dosage: 120 MCG;
     Dates: start: 20100601
  4. REBETOL [Suspect]
     Indication: HEPATITIS C
     Dosage: 600 MG; QAM, 400 MG; HS
     Dates: start: 20100601
  5. REBETOL [Suspect]
     Indication: HEPATITIS C
     Dosage: 600 MG; QAM, 400 MG; HS
     Dates: start: 20010101, end: 20010101

REACTIONS (9)
  - FATIGUE [None]
  - INJECTION SITE HAEMATOMA [None]
  - INJECTION SITE JOINT PAIN [None]
  - ACCIDENTAL EXPOSURE [None]
  - MALAISE [None]
  - UNDERDOSE [None]
  - DIZZINESS [None]
  - NAUSEA [None]
  - VOMITING [None]
